FAERS Safety Report 16023301 (Version 1)
Quarter: 2019Q1

REPORT INFORMATION
  Report Type: Report from Study
  Country: US (occurrence: US)
  Receive Date: 20190301
  Receipt Date: 20190301
  Transmission Date: 20190418
  Serious: Yes (Other)
  Sender: FDA-Public Use
  Company Number: US-REGENERON PHARMACEUTICALS, INC.-2019-19628

PATIENT

DRUGS (4)
  1. EYLEA [Suspect]
     Active Substance: AFLIBERCEPT
     Indication: NEOVASCULAR AGE-RELATED MACULAR DEGENERATION
     Dosage: UNK, EVERY 4 TO 5 WEEKS, OD
     Route: 031
     Dates: start: 20180724, end: 201901
  2. EYLEA [Suspect]
     Active Substance: AFLIBERCEPT
     Indication: CHOROIDAL NEOVASCULARISATION
     Dosage: UNK, EVERY 4 TO 5 WEEKS, OD
     Route: 031
     Dates: start: 201811, end: 201811
  3. ERYTHROMYCIN. [Suspect]
     Active Substance: ERYTHROMYCIN
     Indication: CORNEAL ABRASION
     Dosage: EYE DROPS
     Route: 047
  4. EYLEA [Suspect]
     Active Substance: AFLIBERCEPT
     Dosage: UNK, EVERY 4 TO 5 WEEKS, OD, LAST DOSE
     Route: 031
     Dates: start: 201901, end: 201901

REACTIONS (8)
  - Eye irritation [Unknown]
  - Intentional dose omission [Unknown]
  - Eye swelling [Unknown]
  - Corneal abrasion [Unknown]
  - Lupus-like syndrome [Unknown]
  - Anaphylactic reaction [Unknown]
  - Visual impairment [Unknown]
  - Cataract [Unknown]

NARRATIVE: CASE EVENT DATE: 201811
